FAERS Safety Report 5228346-8 (Version None)
Quarter: 2007Q1

REPORT INFORMATION
  Report Type: 
  Country: None (occurrence: None)
  Receive Date: 20070205
  Receipt Date: 20070124
  Transmission Date: 20070707
  Serious: Yes (Life-Threatening, Hospitalization)
  Sender: FDA-Public Use
  Company Number: US-AMGEN-US191301

PATIENT
  Sex: Male

DRUGS (6)
  1. AMG 706 [Suspect]
     Indication: METASTATIC NEOPLASM
     Route: 048
     Dates: start: 20060707, end: 20060721
  2. PANITUMUMAB [Suspect]
     Indication: METASTATIC NEOPLASM
     Route: 042
     Dates: start: 20060707, end: 20060818
  3. CISPLATIN [Suspect]
     Indication: METASTATIC NEOPLASM
     Route: 042
     Dates: start: 20060707, end: 20060818
  4. GEMCITABINE [Concomitant]
     Indication: METASTATIC NEOPLASM
     Route: 042
     Dates: start: 20060707, end: 20060818
  5. OXYCONTIN [Concomitant]
     Route: 065
  6. CLINDAMYCIN [Concomitant]
     Route: 061

REACTIONS (1)
  - ARTERIAL THROMBOSIS [None]
